FAERS Safety Report 9664952 (Version 3)
Quarter: 2013Q4

REPORT INFORMATION
  Report Type: Spontaneous
  Country: US (occurrence: US)
  Receive Date: 20131101
  Receipt Date: 20131217
  Transmission Date: 20140711
  Serious: Yes (Life-Threatening, Hospitalization)
  Sender: FDA-Public Use
  Company Number: US-PFIZER INC-2013313338

PATIENT
  Age: 65 Year
  Sex: Female
  Weight: 45.35 kg

DRUGS (7)
  1. LYRICA [Suspect]
     Indication: FIBROMYALGIA
     Dosage: 150 MG, 2X/DAY
     Route: 048
     Dates: end: 2013
  2. NEXIUM [Concomitant]
     Dosage: UNK
  3. CLORAZEPATE [Concomitant]
     Dosage: 15 MG, 2X/DAY
  4. FLUTICASONE [Concomitant]
     Dosage: 50 MG, 1X/DAY
     Route: 045
  5. LORATADINE [Concomitant]
     Dosage: 10 MG, 1X/DAY
  6. AMITRIPTYLINE [Concomitant]
     Dosage: 100 MG, 1X/DAY
  7. ADVAIR [Concomitant]
     Dosage: UNK

REACTIONS (3)
  - Apparent death [Unknown]
  - Pneumonia [Unknown]
  - Bacterial test positive [Unknown]
